FAERS Safety Report 5962521-X (Version None)
Quarter: 2008Q4

REPORT INFORMATION
  Report Type: 
  Country: None (occurrence: None)
  Receive Date: 20081121
  Receipt Date: 20081111
  Transmission Date: 20090506
  Serious: Yes (Hospitalization, Other)
  Sender: FDA-Public Use
  Company Number: US-PFIZER INC-2008095449

PATIENT
  Sex: Female
  Weight: 84.545 kg

DRUGS (5)
  1. REVATIO [Suspect]
     Indication: PULMONARY HYPERTENSION
     Dates: start: 20080709
  2. COUMADIN [Suspect]
     Indication: PULMONARY HYPERTENSION
     Dates: start: 20080709
  3. TRAZODONE HCL [Concomitant]
  4. LIPITOR [Concomitant]
  5. LISINOPRIL [Concomitant]

REACTIONS (1)
  - CEREBRAL HAEMORRHAGE [None]
